FAERS Safety Report 7532675-2 (Version None)
Quarter: 2011Q2

REPORT INFORMATION
  Report Type: 
  Country: None (occurrence: None)
  Receive Date: 20110608
  Receipt Date: 20110520
  Transmission Date: 20111010
  Serious: Yes (Hospitalization)
  Sender: FDA-Public Use
  Company Number: A0811016A

PATIENT
  Age: 54 Year
  Sex: Male
  Weight: 113.6 kg

DRUGS (3)
  1. AVANDIA [Suspect]
     Dosage: 4MG TWICE PER DAY
     Route: 048
     Dates: start: 20020305, end: 20080201
  2. GLUCOTROL [Concomitant]
  3. LIPITOR [Concomitant]

REACTIONS (4)
  - RENAL FAILURE [None]
  - CARDIAC FAILURE CONGESTIVE [None]
  - RESPIRATORY FAILURE [None]
  - AMNESIA [None]
